FAERS Safety Report 16608553 (Version 1)
Quarter: 2019Q3

REPORT INFORMATION
  Report Type: Spontaneous
  Country: US (occurrence: US)
  Receive Date: 20190719
  Receipt Date: 20190719
  Transmission Date: 20191004
  Serious: No
  Sender: FDA-Public Use
  Company Number: None

PATIENT
  Age: 79 Year
  Sex: Female

DRUGS (1)
  1. LEUKERAN [Suspect]
     Active Substance: CHLORAMBUCIL
     Dates: start: 20190501, end: 20190719

REACTIONS (2)
  - Red blood cell count decreased [None]
  - Transfusion [None]

NARRATIVE: CASE EVENT DATE: 20190719
